FAERS Safety Report 23408132 (Version 4)
Quarter: 2024Q2

REPORT INFORMATION
  Report Type: Report from Study
  Country: CA (occurrence: CA)
  Receive Date: 20240117
  Receipt Date: 20240529
  Transmission Date: 20240716
  Serious: Yes (Hospitalization, Other)
  Sender: FDA-Public Use
  Company Number: CA-TAKEDA-2024TUS003498

PATIENT
  Sex: Female

DRUGS (1)
  1. VEDOLIZUMAB [Suspect]
     Active Substance: VEDOLIZUMAB
     Indication: Crohn^s disease
     Dosage: 300 MILLIGRAM
     Route: 042
     Dates: start: 20231129, end: 20231218

REACTIONS (4)
  - Pneumonia [Recovering/Resolving]
  - Rotator cuff syndrome [Recovering/Resolving]
  - Fall [Recovering/Resolving]
  - Shoulder fracture [Recovering/Resolving]
